FAERS Safety Report 11435418 (Version 1)
Quarter: 2015Q3

REPORT INFORMATION
  Report Type: Spontaneous
  Country: US (occurrence: US)
  Receive Date: 20150831
  Receipt Date: 20150831
  Transmission Date: 20151125
  Serious: No
  Sender: FDA-Public Use
  Company Number: US-ENDO PHARMACEUTICALS INC.-2015-000130

PATIENT
  Sex: Male

DRUGS (2)
  1. PROMETHAZINE HYDROCHLORIDE TABLETS 25MG [Suspect]
     Active Substance: PROMETHAZINE HYDROCHLORIDE
     Indication: NAUSEA
     Route: 065
  2. METFORMIN [Concomitant]
     Active Substance: METFORMIN HYDROCHLORIDE
     Indication: TYPE 2 DIABETES MELLITUS

REACTIONS (4)
  - Nausea [Unknown]
  - Product quality issue [Unknown]
  - Fatigue [Unknown]
  - Vertigo [Unknown]
